APPROVED DRUG PRODUCT: KETOROLAC TROMETHAMINE
Active Ingredient: KETOROLAC TROMETHAMINE
Strength: 30MG/ML
Dosage Form/Route: INJECTABLE;INJECTION
Application: A075299 | Product #002
Applicant: HIKMA PHARMACEUTICALS USA INC
Approved: Nov 3, 1999 | RLD: No | RS: No | Type: DISCN